FAERS Safety Report 19389433 (Version 6)
Quarter: 2021Q3

REPORT INFORMATION
  Report Type: Report from Study
  Country: ES (occurrence: ES)
  Receive Date: 20210608
  Receipt Date: 20210816
  Transmission Date: 20211014
  Serious: Yes (Death, Hospitalization)
  Sender: FDA-Public Use
  Company Number: ES-EISAI MEDICAL RESEARCH-EC-2021-094072

PATIENT
  Age: 73 Year
  Sex: Female
  Weight: 67.7 kg

DRUGS (15)
  1. OMEPRAZOLE. [Concomitant]
     Active Substance: OMEPRAZOLE
     Dates: start: 20210301, end: 20210530
  2. IDEOS [Concomitant]
     Active Substance: CALCIUM CARBONATE\CHOLECALCIFEROL
     Dates: start: 20210301
  3. LENVATINIB [Suspect]
     Active Substance: LENVATINIB
     Indication: COLORECTAL CANCER
     Route: 048
     Dates: start: 20210331, end: 20210420
  4. LORAZEPAM. [Concomitant]
     Active Substance: LORAZEPAM
     Dates: start: 20210301, end: 20210530
  5. ACETAMINOPHEN. [Concomitant]
     Active Substance: ACETAMINOPHEN
     Dates: start: 20210401, end: 20210510
  6. MIRTAZAPINE. [Concomitant]
     Active Substance: MIRTAZAPINE
     Dates: start: 20210301, end: 20210530
  7. HIDROFEROL [Concomitant]
     Active Substance: CALCIFEDIOL
     Dates: start: 20210301
  8. ENALAPRIL [Concomitant]
     Active Substance: ENALAPRIL
     Dates: start: 20210401, end: 20210402
  9. PEMBROLIZUMAB. [Suspect]
     Active Substance: PEMBROLIZUMAB
     Route: 041
     Dates: start: 20210421, end: 20210512
  10. ENALAPRIL [Concomitant]
     Active Substance: ENALAPRIL
     Dates: start: 20210403, end: 20210405
  11. LENVATINIB [Suspect]
     Active Substance: LENVATINIB
     Dosage: STARTING DOSE AT 20 MG (FLUCTUATED DOSAGE)
     Route: 048
     Dates: start: 20210421
  12. ALPRAZOLAM. [Concomitant]
     Active Substance: ALPRAZOLAM
     Dates: start: 20210401
  13. ENALAPRIL [Concomitant]
     Active Substance: ENALAPRIL
     Dates: start: 20210406, end: 20210607
  14. PEMBROLIZUMAB. [Suspect]
     Active Substance: PEMBROLIZUMAB
     Indication: COLORECTAL CANCER
     Route: 041
     Dates: start: 20210331, end: 20210331
  15. AMLODIPINE [Concomitant]
     Active Substance: AMLODIPINE BESYLATE
     Dates: start: 20210408, end: 20210725

REACTIONS (1)
  - Asthenia [Not Recovered/Not Resolved]

NARRATIVE: CASE EVENT DATE: 20210415
